FAERS Safety Report 10035033 (Version 2)
Quarter: 2014Q1

REPORT INFORMATION
  Report Type: Spontaneous
  Country: FR (occurrence: FR)
  Receive Date: 20140325
  Receipt Date: 20140325
  Transmission Date: 20141002
  Serious: Yes (Other)
  Sender: FDA-Public Use
  Company Number: FR-009507513-1309FRA007934

PATIENT
  Age: 40 Year
  Sex: Female
  Weight: 103 kg

DRUGS (5)
  1. NEXPLANON [Suspect]
     Indication: CONTRACEPTION
     Dosage: UNK
     Route: 059
     Dates: start: 201305, end: 20131113
  2. STILNOX [Concomitant]
  3. LAMALINE (NEW FORMULA) [Concomitant]
  4. MIOREL [Concomitant]
  5. DAFALGAN [Concomitant]

REACTIONS (3)
  - Caesarean section [Unknown]
  - Gestational diabetes [Unknown]
  - Unintended pregnancy [Recovered/Resolved]
